FAERS Safety Report 24362084 (Version 2)
Quarter: 2024Q3

REPORT INFORMATION
  Report Type: Report from Study
  Country: FR (occurrence: FR)
  Receive Date: 20240925
  Receipt Date: 20240930
  Transmission Date: 20241017
  Serious: Yes (Other)
  Sender: MYLAN
  Company Number: FR-MYLANLABS-2024M1086480

PATIENT
  Age: 53 Year
  Sex: Female

DRUGS (14)
  1. BORTEZOMIB [Suspect]
     Active Substance: BORTEZOMIB
     Indication: Plasma cell myeloma
     Dosage: UNK UNK, CYCLE, VTD REGIMEN; RECEIVED 4 CYCLES
     Route: 065
  2. BORTEZOMIB [Suspect]
     Active Substance: BORTEZOMIB
     Dosage: UNK UNK, CYCLE, VTD REGIMEN; RECEIVED 2 CYCLES
     Route: 065
  3. DEXAMETHASONE [Suspect]
     Active Substance: DEXAMETHASONE
     Indication: Plasma cell myeloma
     Dosage: UNK, CYCLE, VTD REGIMEN; RECEIVED 4 CYCLES
     Route: 065
  4. DEXAMETHASONE [Suspect]
     Active Substance: DEXAMETHASONE
     Dosage: UNK, CYCLE, VTD REGIMEN; RECEIVED 2 CYCLES
     Route: 065
  5. DEXAMETHASONE [Suspect]
     Active Substance: DEXAMETHASONE
     Dosage: UNK, CYCLE, DRD REGIMEN; RECEIVED 20 CYCLES
     Route: 065
  6. POMALIDOMIDE [Suspect]
     Active Substance: POMALIDOMIDE
     Indication: Plasma cell myeloma
     Dosage: UNK
     Route: 065
  7. POMALIDOMIDE [Suspect]
     Active Substance: POMALIDOMIDE
     Dosage: UNK, DRUG WAS WITHDRAWN AND LATER RESUMED
     Route: 065
  8. THALIDOMIDE [Suspect]
     Active Substance: THALIDOMIDE
     Indication: Plasma cell myeloma
     Dosage: UNK, CYCLE,  VTD REGIMEN; RECEIVED 4 CYCLES
     Route: 065
  9. THALIDOMIDE [Suspect]
     Active Substance: THALIDOMIDE
     Dosage: UNK, CYCLE, VTD REGIMEN; RECEIVED 2 CYCLES
     Route: 065
  10. DARATUMUMAB [Suspect]
     Active Substance: DARATUMUMAB
     Indication: Plasma cell myeloma
     Dosage: UNK, CYCLE, DRD REGIMEN; RECEIVED 20 CYCLES
     Route: 065
  11. REVLIMID [Suspect]
     Active Substance: LENALIDOMIDE
     Indication: Plasma cell myeloma
     Dosage: UNK, CYCLE, DRD REGIMEN; RECEIVED 20 CYCLES
     Route: 065
  12. CARFILZOMIB [Suspect]
     Active Substance: CARFILZOMIB
     Indication: Plasma cell myeloma
     Dosage: UNK
     Route: 065
  13. CARFILZOMIB [Suspect]
     Active Substance: CARFILZOMIB
     Dosage: UNK,  DRUG WAS WITHDRAWN AND LATER RESUMED
     Route: 065
  14. MELPHALAN [Suspect]
     Active Substance: MELPHALAN
     Indication: Plasma cell myeloma
     Dosage: UNK
     Route: 065

REACTIONS (1)
  - Posterior reversible encephalopathy syndrome [Recovered/Resolved]
